FAERS Safety Report 7518944-0 (Version None)
Quarter: 2011Q2

REPORT INFORMATION
  Report Type: 
  Country: None (occurrence: None)
  Receive Date: 20110602
  Receipt Date: 20110525
  Transmission Date: 20111010
  Serious: Yes (Hospitalization)
  Sender: FDA-Public Use
  Company Number: BR-US-EMD SERONO, INC.-7036998

PATIENT
  Sex: Male

DRUGS (6)
  1. REBIF [Suspect]
     Indication: RELAPSING-REMITTING MULTIPLE SCLEROSIS
     Dates: start: 20090903
  2. CAPTOPRIL [Concomitant]
     Indication: HYPERTENSION
  3. ACETAMINOPHEN AND CODEINE PHOSPHATE [Concomitant]
     Indication: PAIN
  4. VENLIFT [Concomitant]
     Indication: DEPRESSION
  5. CLONAZEPAM [Concomitant]
     Indication: SLEEP DISORDER
  6. TEGRETOL [Concomitant]
     Indication: PAIN

REACTIONS (13)
  - CYSTITIS [None]
  - UMBILICAL HERNIA [None]
  - CONSTIPATION [None]
  - GAIT DISTURBANCE [None]
  - CHOLELITHIASIS [None]
  - HAEMORRHOIDS [None]
  - MYALGIA [None]
  - ABDOMINAL PAIN [None]
  - TENSION [None]
  - GALLBLADDER NECROSIS [None]
  - ASTHENIA [None]
  - VISION BLURRED [None]
  - DEPRESSION [None]
